FAERS Safety Report 25161106 (Version 1)
Quarter: 2025Q2

REPORT INFORMATION
  Report Type: Spontaneous
  Country: US (occurrence: US)
  Receive Date: 20250404
  Receipt Date: 20250404
  Transmission Date: 20250717
  Serious: Yes (Other)
  Sender: MYLAN
  Company Number: US-MYLANLABS-2025M1028681

PATIENT
  Age: 52 Year
  Sex: Female

DRUGS (8)
  1. MIDODRINE [Suspect]
     Active Substance: MIDODRINE
     Indication: Orthostatic hypotension
  2. MIDODRINE [Suspect]
     Active Substance: MIDODRINE
     Route: 065
  3. MIDODRINE [Suspect]
     Active Substance: MIDODRINE
     Route: 065
  4. MIDODRINE [Suspect]
     Active Substance: MIDODRINE
  5. FLUDROCORTISONE [Suspect]
     Active Substance: FLUDROCORTISONE
     Indication: Orthostatic hypotension
  6. FLUDROCORTISONE [Suspect]
     Active Substance: FLUDROCORTISONE
     Route: 065
  7. FLUDROCORTISONE [Suspect]
     Active Substance: FLUDROCORTISONE
     Route: 065
  8. FLUDROCORTISONE [Suspect]
     Active Substance: FLUDROCORTISONE

REACTIONS (1)
  - Drug ineffective [Unknown]
